FAERS Safety Report 9382873 (Version 1)
Quarter: 2013Q3

REPORT INFORMATION
  Report Type: Spontaneous
  Country: FR (occurrence: FR)
  Receive Date: 20130703
  Receipt Date: 20130703
  Transmission Date: 20140515
  Serious: Yes (Other)
  Sender: FDA-Public Use
  Company Number: FR-BAXTER-2013BAX024961

PATIENT
  Sex: Female

DRUGS (1)
  1. CHLORURE DE SODIUM 0.9% POUR CENT BAXTER, SOLUTION POUR PERFUSION EN P [Suspect]
     Indication: HAEMODIALYSIS
     Route: 042

REACTIONS (2)
  - Hypersensitivity [Recovered/Resolved]
  - Respiratory distress [None]
